FAERS Safety Report 14137542 (Version 1)
Quarter: 2017Q4

REPORT INFORMATION
  Report Type: Spontaneous
  Country: US (occurrence: US)
  Receive Date: 20171027
  Receipt Date: 20171027
  Transmission Date: 20180321
  Serious: No
  Sender: FDA-Public Use
  Company Number: US-SA-2017SA005028

PATIENT
  Age: 83 Year
  Sex: Female

DRUGS (1)
  1. UNISOM SLEEPTABS [Suspect]
     Active Substance: DOXYLAMINE SUCCINATE
     Indication: INSOMNIA
     Route: 048
     Dates: start: 20170108

REACTIONS (4)
  - Fatigue [Unknown]
  - Product use issue [Unknown]
  - Insomnia [Unknown]
  - Drug ineffective [Unknown]
